FAERS Safety Report 23479417 (Version 3)
Quarter: 2024Q1

REPORT INFORMATION
  Report Type: Report from Study
  Country: US (occurrence: US)
  Receive Date: 20240205
  Receipt Date: 20240325
  Transmission Date: 20240410
  Serious: Yes (Death, Other)
  Sender: FDA-Public Use
  Company Number: US-ACADIA PHARMACEUTICALS INC.-ACA-2024-PIM-000152

PATIENT
  Age: 71 Year
  Sex: Male

DRUGS (23)
  1. NUPLAZID [Suspect]
     Active Substance: PIMAVANSERIN TARTRATE
     Indication: Parkinson^s disease psychosis
     Dosage: 34 MILLIGRAM, QD
     Route: 048
     Dates: end: 20231225
  2. CALCIUM CARBONATE [Concomitant]
     Active Substance: CALCIUM CARBONATE
  3. AMANTADINE [Concomitant]
     Active Substance: AMANTADINE
  4. BISACODYL [Concomitant]
     Active Substance: BISACODYL
  5. CARBIDOPA\LEVODOPA [Concomitant]
     Active Substance: CARBIDOPA\LEVODOPA
  6. CARBOXYMETHYLCELLULOSE [Concomitant]
     Active Substance: CARBOXYMETHYLCELLULOSE
     Route: 047
  7. CLONAZEPAM [Concomitant]
     Active Substance: CLONAZEPAM
  8. DULOXETINE [Concomitant]
     Active Substance: DULOXETINE
  9. ENTACAPONE [Concomitant]
     Active Substance: ENTACAPONE
  10. FLUDROCORTISONE [Concomitant]
     Active Substance: FLUDROCORTISONE
  11. FOLIC ACID [Concomitant]
     Active Substance: FOLIC ACID
  12. FUROSEMIDE [Concomitant]
     Active Substance: FUROSEMIDE
  13. GABAPENTIN [Concomitant]
     Active Substance: GABAPENTIN
  14. IBUPROFEN [Concomitant]
     Active Substance: IBUPROFEN
  15. LORATADINE [Concomitant]
     Active Substance: LORATADINE
  16. MELATONIN [Concomitant]
     Active Substance: MELATONIN
  17. MIDODRINE [Concomitant]
     Active Substance: MIDODRINE
  18. PANTOPRAZOLE [Concomitant]
     Active Substance: PANTOPRAZOLE
  19. POLYETHYLENE GLYCOL 3350 [Concomitant]
     Active Substance: POLYETHYLENE GLYCOL 3350
  20. RIVASTIGMINE [Concomitant]
     Active Substance: RIVASTIGMINE
  21. SCOPOLAMINE [Concomitant]
     Active Substance: SCOPOLAMINE
  22. DOCUSATE;SENNOSIDES NOS [Concomitant]
  23. TAMSULOSIN [Concomitant]
     Active Substance: TAMSULOSIN

REACTIONS (1)
  - Death [Recovered/Resolved]

NARRATIVE: CASE EVENT DATE: 20231225
